FAERS Safety Report 6710378-1 (Version None)
Quarter: 2010Q2

REPORT INFORMATION
  Report Type: 
  Country: None (occurrence: None)
  Receive Date: 20100504
  Receipt Date: 20100427
  Transmission Date: 20101027
  Serious: No
  Sender: FDA-Public Use
  Company Number: US-B.I. PHARMACEUTICALS,INC./RIDGEFIELD-2010-BP-02050BP

PATIENT
  Age: 72 Year
  Sex: Female

DRUGS (2)
  1. CATAPRES-TTS-1 [Suspect]
     Indication: HYPERTENSION
     Dosage: 0.2 MG
     Route: 061
     Dates: start: 20040101
  2. CATAPRES-TTS-1 [Suspect]
     Dosage: 0.1 MG
     Route: 061
     Dates: end: 20040101

REACTIONS (1)
  - BLOOD PRESSURE INADEQUATELY CONTROLLED [None]
